FAERS Safety Report 4590414-1 (Version None)
Quarter: 2005Q1

REPORT INFORMATION
  Report Type: 
  Country: None (occurrence: None)
  Receive Date: 20050224
  Receipt Date: 20050214
  Transmission Date: 20050727
  Serious: Yes (Hospitalization)
  Sender: FDA-Public Use
  Company Number: FR-JNJFOC-20050203818

PATIENT
  Age: 78 Year
  Sex: Female

DRUGS (2)
  1. REMINYL [Suspect]
     Route: 049
     Dates: start: 20020101, end: 20040501
  2. ZOLOFT [Concomitant]
     Route: 065

REACTIONS (2)
  - LOSS OF CONSCIOUSNESS [None]
  - MALAISE [None]
